FAERS Safety Report 8771694 (Version 2)
Quarter: 2013Q4

REPORT INFORMATION
  Report Type: Spontaneous
  Country: US (occurrence: US)
  Receive Date: 20120906
  Receipt Date: 20131031
  Transmission Date: 20140711
  Serious: No
  Sender: FDA-Public Use
  Company Number: US-009507513-2012SP031627

PATIENT
  Sex: Female

DRUGS (1)
  1. DR. SCHOLL^S FOR HER THERAPEUTIC JELLY SOAK [Suspect]
     Indication: PRODUCT USED FOR UNKNOWN INDICATION
     Dosage: UNK UNK, UNKNOWN
     Route: 061

REACTIONS (1)
  - Nonspecific reaction [Unknown]
